FAERS Safety Report 19050281 (Version 1)
Quarter: 2021Q1

REPORT INFORMATION
  Report Type: Spontaneous
  Country: CA (occurrence: CA)
  Receive Date: 20210323
  Receipt Date: 20210323
  Transmission Date: 20210420
  Serious: Yes (Other)
  Sender: FDA-Public Use
  Company Number: CA-B.I. PHARMACEUTICALS,INC./RIDGEFIELD-2021-BI-091024

PATIENT
  Age: 60 Year
  Sex: Female

DRUGS (69)
  1. CLARITHROMYCIN. [Suspect]
     Active Substance: CLARITHROMYCIN
     Indication: PRODUCT USED FOR UNKNOWN INDICATION
  2. FORMOTEROL [Suspect]
     Active Substance: FORMOTEROL
     Route: 055
  3. OXYCODONE HYDROCHLORIDE. [Suspect]
     Active Substance: OXYCODONE HYDROCHLORIDE
     Dosage: MODIFIED?RELEASE TABLET
  4. POLYMOX [Suspect]
     Active Substance: AMOXICILLIN
     Dosage: 2 DOSAGE FORMS 1 IN 1 DAY?DOSAGE FROM? NOT SPECIFIED
  5. AMOXICILLIN TRIHYDRATE [Suspect]
     Active Substance: AMOXICILLIN
  6. FORMOTEROL FUMARATE [Suspect]
     Active Substance: FORMOTEROL FUMARATE
     Indication: PRODUCT USED FOR UNKNOWN INDICATION
     Dosage: 2 DOSAGE FORMS 1 IN 1 DAY
  7. HYDROCORTISONE ACETATE. [Suspect]
     Active Substance: HYDROCORTISONE ACETATE
     Indication: PRODUCT USED FOR UNKNOWN INDICATION
  8. MONTELUKAST [Suspect]
     Active Substance: MONTELUKAST SODIUM
     Indication: PRODUCT USED FOR UNKNOWN INDICATION
     Dosage: DOSAGE FORM? NOT SPECIFIED
  9. OXYCODONE HYDROCHLORIDE. [Suspect]
     Active Substance: OXYCODONE HYDROCHLORIDE
     Indication: PRODUCT USED FOR UNKNOWN INDICATION
     Dosage: MODIFIED?RELEASE TABLET
  10. OXYNEO [Suspect]
     Active Substance: OXYCODONE
  11. PSYLLIUM HYDROPHILIC MUCILLOID [Concomitant]
     Active Substance: PSYLLIUM HUSK
     Indication: PRODUCT USED FOR UNKNOWN INDICATION
  12. UMECLIDINIUM BROMIDE [Suspect]
     Active Substance: UMECLIDINIUM BROMIDE
     Dosage: 1 DOSAGE FORMS 1 IN 1 DAY
  13. VITAMINS NOS [Concomitant]
     Active Substance: VITAMINS
     Indication: PRODUCT USED FOR UNKNOWN INDICATION
  14. ATOCK [Suspect]
     Active Substance: FORMOTEROL FUMARATE
     Dosage: 2 DOSAGE FORMS 1 IN 1 DAY?DOSAGE FORM? NOT SPECIFIED
  15. COLACE [Suspect]
     Active Substance: DOCUSATE SODIUM
     Indication: PRODUCT USED FOR UNKNOWN INDICATION
     Dosage: 3 DOSAGE FORM
  16. HYDROCORTISONE;PRAMOCAINE;ZINC SULFATE [Suspect]
     Active Substance: HYDROCORTISONE\PRAMOXINE\ZINC SULFATE
     Indication: PRODUCT USED FOR UNKNOWN INDICATION
     Route: 065
  17. NYSTATIN. [Suspect]
     Active Substance: NYSTATIN
  18. NYSTATIN. [Suspect]
     Active Substance: NYSTATIN
     Route: 048
  19. OXYCODONE [Suspect]
     Active Substance: OXYCODONE
  20. POLYMOX [Suspect]
     Active Substance: AMOXICILLIN
     Indication: PRODUCT USED FOR UNKNOWN INDICATION
     Dosage: 2 DOSAGE FORMS 1 IN 1 DAY
  21. RISEDRONATE SODIUM. [Suspect]
     Active Substance: RISEDRONATE SODIUM
  22. RISEDRONATE SODIUM. [Suspect]
     Active Substance: RISEDRONATE SODIUM
  23. VENTOLIN [Suspect]
     Active Substance: ALBUTEROL SULFATE
     Indication: PRODUCT USED FOR UNKNOWN INDICATION
  24. AMOXICILLIN TRIHYDRATE [Suspect]
     Active Substance: AMOXICILLIN
     Indication: PRODUCT USED FOR UNKNOWN INDICATION
  25. COLACE [Suspect]
     Active Substance: DOCUSATE SODIUM
     Dosage: NON SPECIFIED
  26. ESTRADIOL. [Suspect]
     Active Substance: ESTRADIOL
     Indication: PRODUCT USED FOR UNKNOWN INDICATION
     Dosage: 3.0 DOSAGE FORMS 1 IN 1 DAY?DOSAGE FORM? NOT SPECIFIED
  27. FLUCONAZOLE. [Suspect]
     Active Substance: FLUCONAZOLE
     Indication: PRODUCT USED FOR UNKNOWN INDICATION
  28. FORMOTEROL [Suspect]
     Active Substance: FORMOTEROL
     Indication: PRODUCT USED FOR UNKNOWN INDICATION
     Dosage: 2 DOSAGE FORMS 1 IN 1 DAY
  29. NYSTATIN. [Suspect]
     Active Substance: NYSTATIN
     Dosage: 3 DOSAGE FORMS 1 IN 1 DAY
     Route: 048
  30. OXYCODONE [Suspect]
     Active Substance: OXYCODONE
     Indication: PRODUCT USED FOR UNKNOWN INDICATION
     Dosage: 3 DOSAGE FORMS 1 IN 1 DAY
  31. OXYNEO [Suspect]
     Active Substance: OXYCODONE
     Dosage: TABLET (EXTENDED?RELEASE)?3 DOSAGE FORMS 1 IN 1 DAY
  32. PANTOPRAZOLE [Suspect]
     Active Substance: PANTOPRAZOLE
     Indication: PRODUCT USED FOR UNKNOWN INDICATION
  33. PREDNISONE. [Suspect]
     Active Substance: PREDNISONE
     Indication: PRODUCT USED FOR UNKNOWN INDICATION
     Dosage: DOSAGE FORM? NOT SPECIFIED
  34. RIVAROXABAN [Suspect]
     Active Substance: RIVAROXABAN
     Indication: PRODUCT USED FOR UNKNOWN INDICATION
  35. SALBUTAMOL SULFATE [Suspect]
     Active Substance: ALBUTEROL SULFATE
     Indication: PRODUCT USED FOR UNKNOWN INDICATION
  36. UMECLIDINIUM BROMIDE [Suspect]
     Active Substance: UMECLIDINIUM BROMIDE
     Dosage: 1 DOSAGE FORMS 1 IN 1 DAY
  37. XARELTO [Suspect]
     Active Substance: RIVAROXABAN
     Indication: PRODUCT USED FOR UNKNOWN INDICATION
  38. COMBIVENT [Suspect]
     Active Substance: ALBUTEROL SULFATE\IPRATROPIUM BROMIDE
     Indication: PRODUCT USED FOR UNKNOWN INDICATION
     Dosage: DOSAGE FORM? NOT SPECIFIED
  39. BREO ELLIPTA [Suspect]
     Active Substance: FLUTICASONE FUROATE\VILANTEROL TRIFENATATE
     Dosage: 1 DOSAGE FORMS  DOSAGE FORM ? INHALATION
     Route: 065
  40. FLUTICASONE. [Suspect]
     Active Substance: FLUTICASONE
     Indication: PRODUCT USED FOR UNKNOWN INDICATION
     Dosage: 2 DOSAGE FORMS 1 IN 1 DAY
  41. NYSTATIN. [Suspect]
     Active Substance: NYSTATIN
     Dosage: 3 DOSAGE FORMS 1 IN 1 DAY
     Route: 048
  42. OXYCODONE HYDROCHLORIDE. [Suspect]
     Active Substance: OXYCODONE HYDROCHLORIDE
  43. OXYNEO [Suspect]
     Active Substance: OXYCODONE
     Indication: PRODUCT USED FOR UNKNOWN INDICATION
     Dosage: 3 DOSAGE FORMS 1 IN 1 DAY
  44. OXYNEO [Suspect]
     Active Substance: OXYCODONE
  45. OXYNEO [Suspect]
     Active Substance: OXYCODONE
  46. PULMICORT TURBUHALER [Concomitant]
     Active Substance: BUDESONIDE
     Indication: SEASONAL ALLERGY
  47. XARELTO [Suspect]
     Active Substance: RIVAROXABAN
  48. MONTELUKAST SODIUM. [Suspect]
     Active Substance: MONTELUKAST SODIUM
     Indication: PRODUCT USED FOR UNKNOWN INDICATION
  49. NYSTATIN. [Suspect]
     Active Substance: NYSTATIN
     Indication: PRODUCT USED FOR UNKNOWN INDICATION
     Route: 048
  50. SALBUTAMOL [Suspect]
     Active Substance: ALBUTEROL
     Indication: PRODUCT USED FOR UNKNOWN INDICATION
     Dosage: NOT SPECIFIED
  51. ZINC SULFATE. [Suspect]
     Active Substance: ZINC SULFATE
     Indication: PRODUCT USED FOR UNKNOWN INDICATION
  52. BREO ELLIPTA [Suspect]
     Active Substance: FLUTICASONE FUROATE\VILANTEROL TRIFENATATE
     Indication: PRODUCT USED FOR UNKNOWN INDICATION
     Dosage: 1 DOSAGE FORMS 1 IN 1 DAY
  53. ESOMEPRAZOLE MAGNESIUM TRIHYDRATE [Suspect]
     Active Substance: ESOMEPRAZOLE MAGNESIUM
     Indication: PRODUCT USED FOR UNKNOWN INDICATION
  54. FLUTICASONE PROPIONATE. [Suspect]
     Active Substance: FLUTICASONE PROPIONATE
     Indication: PRODUCT USED FOR UNKNOWN INDICATION
     Dosage: 2 DOSAGE FORMS 1 IN 1 DAY
  55. FORMOTEROL [Suspect]
     Active Substance: FORMOTEROL
     Dosage: 1 DOSAGE FORM
  56. NYSTATIN. [Suspect]
     Active Substance: NYSTATIN
     Dosage: 3 DOSAGE FORMS 1 IN 1 DAY?DOSAGE FORM? NOT SPECIFIED
  57. OXYNEO [Suspect]
     Active Substance: OXYCODONE
     Dosage: 3 DOSAGE FORMS 1 IN 1 DAY
  58. PLANTAGO OVATA [Concomitant]
     Active Substance: HERBALS\PLANTAGO OVATA LEAF
     Indication: PRODUCT USED FOR UNKNOWN INDICATION
  59. POLYMOX [Suspect]
     Active Substance: AMOXICILLIN
  60. PRAMOXINE HYDROCHLORIDE. [Suspect]
     Active Substance: PRAMOXINE HYDROCHLORIDE
     Indication: PRODUCT USED FOR UNKNOWN INDICATION
  61. UMECLIDINIUM BROMIDE [Suspect]
     Active Substance: UMECLIDINIUM BROMIDE
     Indication: PRODUCT USED FOR UNKNOWN INDICATION
  62. ATOCK [Suspect]
     Active Substance: FORMOTEROL FUMARATE
     Indication: PRODUCT USED FOR UNKNOWN INDICATION
     Dosage: 2 DOSAGE FORMS 1 IN 1 DAY
  63. CLARITHROMYCIN. [Suspect]
     Active Substance: CLARITHROMYCIN
     Dosage: 2 DOSAGE FORMS 1 IN 1 DAY
  64. CLARITHROMYCIN. [Suspect]
     Active Substance: CLARITHROMYCIN
     Dosage: DOSAGE FORM? NOT SPECIFIED
  65. HYDROCORTISONE;PRAMOCAINE;ZINC SULFATE [Suspect]
     Active Substance: HYDROCORTISONE\PRAMOXINE\ZINC SULFATE
  66. OXYNEO [Suspect]
     Active Substance: OXYCODONE
  67. RISEDRONATE SODIUM. [Suspect]
     Active Substance: RISEDRONATE SODIUM
     Indication: PRODUCT USED FOR UNKNOWN INDICATION
     Dosage: DOSAGE FORM? NOT SPECIFIED
  68. RISEDRONATE SODIUM. [Suspect]
     Active Substance: RISEDRONATE SODIUM
  69. UMECLIDINIUM BROMIDE [Suspect]
     Active Substance: UMECLIDINIUM BROMIDE
     Dosage: 1 DOSAGE FORMS 1 IN 1 DAY
     Route: 055

REACTIONS (36)
  - Diastolic dysfunction [Unknown]
  - Disease recurrence [Unknown]
  - Dyspnoea [Unknown]
  - Emphysema [Unknown]
  - Salpingo-oophorectomy unilateral [Unknown]
  - Sinusitis [Unknown]
  - Wheezing [Unknown]
  - Chronic sinusitis [Unknown]
  - Eczema [Unknown]
  - Embolism venous [Unknown]
  - Hysterectomy [Unknown]
  - Obstructive airways disorder [Unknown]
  - Osteoporosis [Unknown]
  - Tricuspid valve incompetence [Unknown]
  - Deep vein thrombosis [Unknown]
  - Diverticulum [Unknown]
  - Pulmonary embolism [Unknown]
  - Candida infection [Unknown]
  - Dyspnoea exertional [Unknown]
  - Female genital tract fistula [Unknown]
  - Fungal infection [Unknown]
  - Gastrooesophageal reflux disease [Unknown]
  - Sputum increased [Unknown]
  - Chest discomfort [Unknown]
  - Hiatus hernia [Unknown]
  - Weight increased [Unknown]
  - Cough [Unknown]
  - Iron deficiency anaemia [Unknown]
  - Nasal polyps [Unknown]
  - Sinusitis fungal [Unknown]
  - Sleep apnoea syndrome [Unknown]
  - Oedema peripheral [Unknown]
  - Asthma [Unknown]
  - Lower respiratory tract infection [Unknown]
  - Osteoarthritis [Unknown]
  - Respiratory symptom [Unknown]
